FAERS Safety Report 5531350-3 (Version None)
Quarter: 2007Q4

REPORT INFORMATION
  Report Type: 
  Country: None (occurrence: None)
  Receive Date: 20071128
  Receipt Date: 20071113
  Transmission Date: 20080405
  Serious: Yes (Other)
  Sender: FDA-Public Use
  Company Number: 100#03#2007-04780

PATIENT
  Age: 19 Year
  Sex: Female

DRUGS (3)
  1. DOXYCYCLINE [Suspect]
     Indication: DRUG USE FOR UNKNOWN INDICATION
     Dosage: 100 MG TWICE A DAY, ORAL
     Route: 048
  2. AMOXICILLINE (AMOXICILLIN) (AMOXICILLINE) [Concomitant]
  3. METRONIDAZOLE [Concomitant]

REACTIONS (2)
  - INTRACRANIAL PRESSURE INCREASED [None]
  - VITH NERVE PARALYSIS [None]
